FAERS Safety Report 4708227-6 (Version None)
Quarter: 2005Q2

REPORT INFORMATION
  Report Type: 
  Country: None (occurrence: None)
  Receive Date: 20050629
  Receipt Date: 20050516
  Transmission Date: 20051028
  Serious: No
  Sender: FDA-Public Use
  Company Number: 05P-163-0300613-00

PATIENT
  Age: 67 Year
  Sex: Female

DRUGS (8)
  1. HUMIRA [Suspect]
     Indication: RHEUMATOID ARTHRITIS
     Dosage: 40 MG, 1 IN 2 WK, SUBCUTANEOUS
     Route: 058
     Dates: start: 20050403
  2. PREDNISONE TAB [Concomitant]
  3. FOLIC ACID [Concomitant]
  4. ALPRAZOLAM [Concomitant]
  5. SUCRALFATE [Concomitant]
  6. LIBRAX [Concomitant]
  7. ZOCOR [Concomitant]
  8. HYDROCODONE [Concomitant]

REACTIONS (1)
  - CYSTITIS [None]
